FAERS Safety Report 6592675-6 (Version None)
Quarter: 2010Q1

REPORT INFORMATION
  Report Type: 
  Country: None (occurrence: None)
  Receive Date: 20100222
  Receipt Date: 20100211
  Transmission Date: 20100710
  Serious: Yes (Hospitalization)
  Sender: FDA-Public Use
  Company Number: US-BIOGENIDEC-2009BI040466

PATIENT
  Age: 53 Year
  Sex: Female

DRUGS (3)
  1. AVONEX [Suspect]
     Indication: MULTIPLE SCLEROSIS
     Route: 030
     Dates: start: 20090526
  2. AVONEX [Suspect]
     Route: 030
     Dates: start: 20001114, end: 20030701
  3. AVONEX [Suspect]
     Route: 030
     Dates: start: 20030801, end: 20051201

REACTIONS (3)
  - BACK PAIN [None]
  - SCOLIOSIS [None]
  - SPINAL DISORDER [None]
